FAERS Safety Report 9326021 (Version 1)
Quarter: 2013Q2

REPORT INFORMATION
  Report Type: Spontaneous
  Country: US (occurrence: US)
  Receive Date: 20130604
  Receipt Date: 20130604
  Transmission Date: 20140414
  Serious: No
  Sender: FDA-Public Use
  Company Number: US-009507513-1305USA014637

PATIENT
  Age: 52 Year
  Sex: Male
  Weight: 81.63 kg

DRUGS (1)
  1. CLARITIN [Suspect]
     Indication: SEASONAL ALLERGY
     Dosage: 10 UNK, UNK
     Dates: start: 20130518

REACTIONS (1)
  - Insomnia [Unknown]
